FAERS Safety Report 22083910 (Version 2)
Quarter: 2023Q2

REPORT INFORMATION
  Report Type: Report from Study
  Country: US (occurrence: US)
  Receive Date: 20230310
  Receipt Date: 20230410
  Transmission Date: 20230721
  Serious: Yes (Hospitalization, Other)
  Sender: FDA-Public Use
  Company Number: US-GILEAD-2023-0619151

PATIENT
  Sex: Female

DRUGS (14)
  1. AZTREONAM LYSINE [Suspect]
     Active Substance: AZTREONAM LYSINE
     Indication: Cystic fibrosis
     Dosage: TAKE 75MG BY NEBULIZATION THREE TIMES A DAY FOR 28 DAYS EVERY OTHER MONTH
     Route: 055
     Dates: start: 20221228
  2. ALBUTOL [ETHAMBUTOL DIHYDROCHLORIDE] [Concomitant]
  3. AMITRIPTYLINE [Concomitant]
     Active Substance: AMITRIPTYLINE
  4. BETHANECHOL [Concomitant]
     Active Substance: BETHANECHOL
  5. CREON [Concomitant]
     Active Substance: PANCRELIPASE AMYLASE\PANCRELIPASE LIPASE\PANCRELIPASE PROTEASE
  6. MINERALS\VITAMINS [Concomitant]
     Active Substance: MINERALS\VITAMINS
  7. LUBIPROSTONE [Concomitant]
     Active Substance: LUBIPROSTONE
  8. OMEPRAZOLE [Concomitant]
     Active Substance: OMEPRAZOLE
  9. POTASSIUM CHLORIDE [Concomitant]
     Active Substance: POTASSIUM CHLORIDE
  10. PULMOZYME [Concomitant]
     Active Substance: DORNASE ALFA
  11. SODIUM CHLORIDE [Concomitant]
     Active Substance: SODIUM CHLORIDE
  12. SYMBICORT [Concomitant]
     Active Substance: BUDESONIDE\FORMOTEROL FUMARATE DIHYDRATE
  13. TOBRAMYCIN [Concomitant]
     Active Substance: TOBRAMYCIN
  14. ZENPEP [Concomitant]
     Active Substance: PANCRELIPASE AMYLASE\PANCRELIPASE LIPASE\PANCRELIPASE PROTEASE

REACTIONS (4)
  - Cystic fibrosis respiratory infection suppression [Unknown]
  - Cough [Not Recovered/Not Resolved]
  - Weight decreased [Not Recovered/Not Resolved]
  - Secretion discharge [Not Recovered/Not Resolved]
